FAERS Safety Report 4941873-3 (Version None)
Quarter: 2006Q2

REPORT INFORMATION
  Report Type: 
  Country: None (occurrence: None)
  Receive Date: 20060308
  Receipt Date: 20060222
  Transmission Date: 20061013
  Serious: Yes (Hospitalization)
  Sender: FDA-Public Use
  Company Number: 051129-0001103

PATIENT
  Age: 14 Year
  Sex: Male

DRUGS (7)
  1. COSMEGEN [Suspect]
     Indication: RHABDOMYOSARCOMA
     Dosage: 0.73 MG; QD; IV
     Route: 042
     Dates: start: 20050528, end: 20050601
  2. ETOPOSIDE [Suspect]
     Indication: RHABDOMYOSARCOMA
     Dosage: 150 MG;
     Dates: start: 20050528, end: 20050601
  3. IFOSFAMIDE [Suspect]
     Indication: RHABDOMYOSARCOMA
     Dosage: 2700 MG; IV
     Route: 042
     Dates: start: 20050528, end: 20050601
  4. VINCRISTINE [Suspect]
     Indication: RHABDOMYOSARCOMA
     Dosage: 2 MG;
     Dates: start: 20050604, end: 20050604
  5. CISPLATIN [Concomitant]
  6. CYCLOPHOSPHAMIDE [Concomitant]
  7. PIRARUBICIN [Concomitant]

REACTIONS (6)
  - APHAGIA [None]
  - APHASIA [None]
  - APHTHOUS STOMATITIS [None]
  - GLOSSITIS [None]
  - ORAL MUCOSA EROSION [None]
  - SWOLLEN TONGUE [None]
